FAERS Safety Report 7323665-3 (Version None)
Quarter: 2011Q1

REPORT INFORMATION
  Report Type: 
  Country: None (occurrence: None)
  Receive Date: 20110301
  Receipt Date: 20110216
  Transmission Date: 20110831
  Serious: Yes (Hospitalization, Other)
  Sender: FDA-Public Use
  Company Number: US-ELI_LILLY_AND_COMPANY-US201102005100

PATIENT
  Age: 53 Year
  Sex: Female

DRUGS (1)
  1. ZYPREXA ZYDIS [Suspect]
     Indication: BIPOLAR I DISORDER
     Dosage: 15 MG, DAILY (1/D)

REACTIONS (5)
  - PNEUMONIA [None]
  - GASTROSTOMY TUBE INSERTION [None]
  - SEPSIS [None]
  - RESPIRATORY FAILURE [None]
  - ASPIRATION [None]
